FAERS Safety Report 5026593-1 (Version None)
Quarter: 2006Q2

REPORT INFORMATION
  Report Type: 
  Country: None (occurrence: None)
  Receive Date: 20060426
  Receipt Date: 20060308
  Transmission Date: 20061013
  Serious: Yes (Other)
  Sender: FDA-Public Use
  Company Number: 2006034295

PATIENT
  Age: 58 Year
  Sex: Female
  Weight: 56.6996 kg

DRUGS (4)
  1. LYRICA [Suspect]
     Indication: NERVE INJURY
     Dosage: 100 MG (50 MG, 2 IN 1 D), ORAL
     Route: 048
     Dates: start: 20060201, end: 20060201
  2. VITAMINS (VITAMINS) [Concomitant]
  3. BENADRYL [Concomitant]
  4. PREMARIN [Concomitant]

REACTIONS (2)
  - INFLUENZA [None]
  - RASH [None]
